FAERS Safety Report 6641574-X (Version None)
Quarter: 2010Q1

REPORT INFORMATION
  Report Type: 
  Country: None (occurrence: None)
  Receive Date: 20100317
  Receipt Date: 20100317
  Transmission Date: 20100710
  Serious: Yes (Other)
  Sender: FDA-Public Use
  Company Number: None

PATIENT
  Age: 75 Year
  Sex: Female
  Weight: 87.5 kg

DRUGS (10)
  1. INSULIN, GLARGINE [Suspect]
     Indication: TYPE 1 DIABETES MELLITUS
     Dosage: 22UNITS QHS SQ
     Route: 058
     Dates: start: 20100120, end: 20100124
  2. ASPIRIN [Concomitant]
  3. ATENOLOL [Concomitant]
  4. DIPHENHYDRAMINE HYDROCHLORIDE [Concomitant]
  5. DULOXETINE HYDROCHLORIDE [Concomitant]
  6. EZETIMIBE [Concomitant]
  7. FENTANYL [Concomitant]
  8. FOLIC ACID [Concomitant]
  9. GABAPENTIN [Concomitant]
  10. HEPARIN [Concomitant]

REACTIONS (1)
  - BLOOD GLUCOSE DECREASED [None]
